APPROVED DRUG PRODUCT: AMOXICILLIN
Active Ingredient: AMOXICILLIN
Strength: 250MG
Dosage Form/Route: CAPSULE;ORAL
Application: A065291 | Product #001 | TE Code: AB
Applicant: HIKMA PHARMACEUTICALS
Approved: Feb 5, 2007 | RLD: No | RS: No | Type: RX